FAERS Safety Report 7247097-1 (Version None)
Quarter: 2011Q1

REPORT INFORMATION
  Report Type: 
  Country: None (occurrence: None)
  Receive Date: 20110127
  Receipt Date: 20100413
  Transmission Date: 20110831
  Serious: No
  Sender: FDA-Public Use
  Company Number: US-BAUSCH-2010BL002029

PATIENT
  Age: 15 Year
  Sex: Male

DRUGS (2)
  1. ALAWAY [Suspect]
     Indication: EYE IRRITATION
     Route: 047
  2. ALAWAY [Suspect]
     Indication: EYE ALLERGY
     Route: 047

REACTIONS (1)
  - EYE IRRITATION [None]
